FAERS Safety Report 17885386 (Version 2)
Quarter: 2020Q3

REPORT INFORMATION
  Report Type: Spontaneous
  Country: US (occurrence: US)
  Receive Date: 20200611
  Receipt Date: 20200806
  Transmission Date: 20201103
  Serious: No
  Sender: FDA-Public Use
  Company Number: US-BIOGEN-2017BI00365391

PATIENT
  Age: 57 Year
  Sex: Male

DRUGS (3)
  1. LYRICA [Concomitant]
     Active Substance: PREGABALIN
     Route: 065
  2. LYRICA [Concomitant]
     Active Substance: PREGABALIN
     Route: 065
  3. PLEGRIDY [Suspect]
     Active Substance: PEGINTERFERON BETA-1A
     Indication: MULTIPLE SCLEROSIS
     Route: 058
     Dates: start: 20151230, end: 20170503

REACTIONS (29)
  - Arthropathy [Not Recovered/Not Resolved]
  - Renal function test abnormal [Unknown]
  - Therapeutic product effect decreased [Recovered/Resolved]
  - Asthenia [Unknown]
  - Dyspnoea [Recovered/Resolved]
  - Inflammation [Recovered/Resolved]
  - Pruritus [Unknown]
  - Visual impairment [Unknown]
  - Musculoskeletal chest pain [Recovered/Resolved]
  - Pain [Not Recovered/Not Resolved]
  - Liver function test increased [Recovered/Resolved]
  - Muscular weakness [Unknown]
  - Rash macular [Unknown]
  - Vision blurred [Recovered/Resolved]
  - Injection site pruritus [Not Recovered/Not Resolved]
  - Balance disorder [Not Recovered/Not Resolved]
  - Fall [Recovered/Resolved]
  - Arthralgia [Unknown]
  - Stress [Unknown]
  - Multiple sclerosis relapse [Unknown]
  - Arthritis [Not Recovered/Not Resolved]
  - Drug intolerance [Unknown]
  - Injection site inflammation [Unknown]
  - Pain in extremity [Not Recovered/Not Resolved]
  - Skin discolouration [Not Recovered/Not Resolved]
  - Fibromyalgia [Unknown]
  - Gait disturbance [Unknown]
  - Hypoaesthesia [Recovered/Resolved]
  - Tremor [Recovered/Resolved]

NARRATIVE: CASE EVENT DATE: 201612
